FAERS Safety Report 22289832 (Version 1)
Quarter: 2023Q2

REPORT INFORMATION
  Report Type: Spontaneous
  Country: CN (occurrence: CN)
  Receive Date: 20230505
  Receipt Date: 20230505
  Transmission Date: 20230721
  Serious: Yes (Other)
  Sender: FDA-Public Use
  Company Number: CN-009507513-2305CHN000583

PATIENT
  Age: 89 Year
  Sex: Male
  Weight: 66 kg

DRUGS (1)
  1. INVANZ [Suspect]
     Active Substance: ERTAPENEM SODIUM
     Indication: Pneumonia
     Route: 041
     Dates: start: 20230423, end: 20230423

REACTIONS (6)
  - Agitation [Unknown]
  - Delirium [Unknown]
  - Illusion [Unknown]
  - Disorientation [Unknown]
  - Mania [Unknown]
  - Anger [Unknown]

NARRATIVE: CASE EVENT DATE: 20230424
